FAERS Safety Report 7410768-8 (Version None)
Quarter: 2011Q2

REPORT INFORMATION
  Report Type: 
  Country: None (occurrence: None)
  Receive Date: 20110405
  Receipt Date: 20110321
  Transmission Date: 20111010
  Serious: Yes (Hospitalization)
  Sender: FDA-Public Use
  Company Number: 2011MA002667

PATIENT
  Age: 30 Year
  Sex: Male

DRUGS (3)
  1. SULFPIRIDE [Concomitant]
  2. CHLORPROMAZINE HCL [Suspect]
     Indication: BIPOLAR DISORDER
     Dosage: 200 MG
  3. LITHIUM [Concomitant]

REACTIONS (6)
  - TOXIC EPIDERMAL NECROLYSIS [None]
  - PRURITUS GENERALISED [None]
  - WHITE BLOOD CELL COUNT INCREASED [None]
  - IRRITABILITY [None]
  - PYREXIA [None]
  - CONJUNCTIVITIS [None]
